FAERS Safety Report 13134902 (Version 1)
Quarter: 2017Q1

REPORT INFORMATION
  Report Type: Report from Study
  Country: US (occurrence: US)
  Receive Date: 20170120
  Receipt Date: 20170120
  Transmission Date: 20170428
  Serious: Yes (Death, Other)
  Sender: FDA-Public Use
  Company Number: US-PURDUE-USA-2017-0136022

PATIENT
  Age: 31 Year
  Sex: Male

DRUGS (1)
  1. HYDROCODONE BITARTRATE. [Suspect]
     Active Substance: HYDROCODONE BITARTRATE
     Indication: PAIN
     Dosage: UNK
     Route: 048

REACTIONS (2)
  - Road traffic accident [Unknown]
  - Death [Fatal]

NARRATIVE: CASE EVENT DATE: 20161216
